FAERS Safety Report 10936262 (Version 1)
Quarter: 2015Q1

REPORT INFORMATION
  Report Type: Spontaneous
  Country: US (occurrence: None)
  Receive Date: 20150319
  Receipt Date: 20150319
  Transmission Date: 20150721
  Serious: No
  Sender: FDA-Public Use
  Company Number: None

PATIENT
  Age: 39 Year
  Sex: Male

DRUGS (1)
  1. STELARA [Suspect]
     Active Substance: USTEKINUMAB
     Indication: PSORIASIS
     Dosage: 90MG Q 12 WEEKS SUBCUTANEOUS
     Route: 058
     Dates: start: 201212, end: 201503

REACTIONS (2)
  - No therapeutic response [None]
  - Condition aggravated [None]

NARRATIVE: CASE EVENT DATE: 201503
